FAERS Safety Report 12789119 (Version 1)
Quarter: 2016Q3

REPORT INFORMATION
  Report Type: Spontaneous
  Country: DE (occurrence: DE)
  Receive Date: 20160928
  Receipt Date: 20160928
  Transmission Date: 20161109
  Serious: Yes (Hospitalization)
  Sender: FDA-Public Use
  Company Number: DE-BAYER-2016-180875

PATIENT
  Age: 26 Year

DRUGS (2)
  1. METFORMIN [Suspect]
     Active Substance: METFORMIN HYDROCHLORIDE
  2. ACETYLSALICYLIC ACID({=100 MG) [Suspect]
     Active Substance: ASPIRIN

REACTIONS (8)
  - Acute respiratory failure [None]
  - Depressed level of consciousness [None]
  - Toxicity to various agents [None]
  - Haemorrhage [None]
  - Hepatic function abnormal [None]
  - Acute kidney injury [None]
  - Cardiac failure [None]
  - Lactic acidosis [None]
